FAERS Safety Report 25218968 (Version 1)
Quarter: 2025Q2

REPORT INFORMATION
  Report Type: Spontaneous
  Country: IN (occurrence: IN)
  Receive Date: 20250421
  Receipt Date: 20250421
  Transmission Date: 20250716
  Serious: Yes (Hospitalization, Other)
  Sender: IPCA
  Company Number: IN-IPCA LABORATORIES LIMITED-IPC-2025-IN-000976

PATIENT

DRUGS (3)
  1. CHLOROQUINE [Suspect]
     Active Substance: CHLOROQUINE
     Indication: Rheumatoid arthritis
     Route: 065
  2. ACETAMINOPHEN [Concomitant]
     Active Substance: ACETAMINOPHEN
     Indication: Pain
     Route: 065
  3. FOLIC ACID [Concomitant]
     Active Substance: FOLIC ACID
     Indication: Product used for unknown indication
     Route: 065

REACTIONS (3)
  - Erythema multiforme [Recovered/Resolved]
  - Type IV hypersensitivity reaction [Recovered/Resolved]
  - Rash [Recovered/Resolved]
